FAERS Safety Report 23341141 (Version 1)
Quarter: 2023Q4

REPORT INFORMATION
  Report Type: Spontaneous
  Country: CN (occurrence: CN)
  Receive Date: 20231227
  Receipt Date: 20231227
  Transmission Date: 20240109
  Serious: Yes (Other)
  Sender: FDA-Public Use
  Company Number: CN-ASTELLAS-2023US038636

PATIENT
  Age: 30 Year
  Sex: Male

DRUGS (7)
  1. GILTERITINIB [Suspect]
     Active Substance: GILTERITINIB
     Indication: Acute promyelocytic leukaemia
     Dosage: 120 MG, UNKNOWN FREQ. (DAY 1-28, 1ST AND 2ND MONTH)
     Route: 065
  2. VENETOCLAX [Concomitant]
     Active Substance: VENETOCLAX
     Indication: Acute promyelocytic leukaemia
     Dosage: 100 MG, UNKNOWN FREQ. (DAY 1)
     Route: 065
  3. VENETOCLAX [Concomitant]
     Active Substance: VENETOCLAX
     Dosage: 200 MG, UNKNOWN FREQ. (DAY2)
     Route: 065
  4. VENETOCLAX [Concomitant]
     Active Substance: VENETOCLAX
     Dosage: 400 MG, UNKNOWN FREQ. (DAY 3 TO 28)
     Route: 065
  5. AZACITIDINE [Concomitant]
     Active Substance: AZACITIDINE
     Indication: Acute promyelocytic leukaemia
     Dosage: 75 MG/M2, UNKNOWN FREQ. (DAY 1 -7)
     Route: 065
  6. TRETINOIN [Concomitant]
     Active Substance: TRETINOIN
     Indication: Acute promyelocytic leukaemia
     Dosage: 20 MG, EVERY 12 HOURS (DAY 1 TO 14)
     Route: 065
  7. Realgar Indigo naturalis [Concomitant]
     Indication: Acute promyelocytic leukaemia
     Dosage: 5 DF, EVERY 8 HOURS (D15 TO D28)
     Route: 065

REACTIONS (2)
  - Granulocytopenia [Unknown]
  - Off label use [Unknown]
